FAERS Safety Report 9197297 (Version 1)
Quarter: 2013Q1

REPORT INFORMATION
  Report Type: Spontaneous
  Country: US (occurrence: None)
  Receive Date: 20120709
  Receipt Date: 20120709
  Transmission Date: 20140127
  Serious: No
  Sender: FDA-Public Use
  Company Number: 2012HGS-003638

PATIENT
  Age: 63 Year
  Sex: Female
  Weight: 64.86 kg

DRUGS (9)
  1. BENLYSTA [Suspect]
     Indication: SYSTEMIC LUPUS ERYTHEMATOSUS
     Dosage: 1 IN 28 D, INTRAVENOUS DRIP
  2. METHOTREXATE(METHOTREXATE SODIUM) (METHOTREXATE SODIUM) [Concomitant]
     Dosage: 8 - 1 WK, ORAL
  3. MEDROL (METHYLPREDNISOLONE)) (METHYLPREDNISOLOME) [Concomitant]
     Dosage: 1 IN 1 D
  4. PLAQUENIL (HYDROXYCHLOROQUINE SILFATE) (HYDROXYCHLOROQUINE SULFATE) [Concomitant]
     Dosage: 2 IN 1 D
  5. CYMBALTA (DULOXETINE HYDROCHLORIDE) (DULOXETINE HYDROCHLORIDE) [Concomitant]
     Dosage: 1 IN 1 D
  6. POLIC ACID (POLIC ACID) (POLIC ACID) [Concomitant]
     Dosage: 1 IN 1 D
  7. ALENDRONATE (ALENDRONATE SODIUM) (ALENDRONATE SODIUM) [Concomitant]
     Dosage: 1 IN 1 WK
  8. MELOXICAN (MELOXICAN) (MELOXICAN) [Concomitant]
     Dosage: AS NEEDED
  9. LIDODERM (LIDOCAINE) (LIDOCAINE) [Concomitant]
     Dosage: AS NEEDED
     Dates: start: 20120401

REACTIONS (2)
  - Vomiting [None]
  - Weight increased [None]
